FAERS Safety Report 14887234 (Version 3)
Quarter: 2019Q2

REPORT INFORMATION
  Report Type: Spontaneous
  Country: US (occurrence: US)
  Receive Date: 20180513
  Receipt Date: 20190403
  Transmission Date: 20190711
  Serious: No
  Sender: FDA-Public Use
  Company Number: US-ASTRAZENECA-2018SE57701

PATIENT
  Age: 24027 Day
  Sex: Female
  Weight: 87.1 kg

DRUGS (2)
  1. BYDUREON [Suspect]
     Active Substance: EXENATIDE
     Indication: TYPE 2 DIABETES MELLITUS
     Route: 058
     Dates: start: 2017
  2. BYDUREON BCISE [Suspect]
     Active Substance: EXENATIDE
     Indication: TYPE 2 DIABETES MELLITUS
     Route: 065

REACTIONS (10)
  - Product dose omission [Unknown]
  - Incorrect dose administered [Unknown]
  - Intentional device misuse [Unknown]
  - Device failure [Unknown]
  - Device issue [Unknown]
  - Weight decreased [Unknown]
  - Circumstance or information capable of leading to medication error [Unknown]
  - Device malfunction [Unknown]
  - Incorrect dose administered [Unknown]
  - Wrong technique in device usage process [Unknown]

NARRATIVE: CASE EVENT DATE: 20180425
